FAERS Safety Report 12180980 (Version 1)
Quarter: 2016Q1

REPORT INFORMATION
  Report Type: Spontaneous
  Country: US (occurrence: US)
  Receive Date: 20160315
  Receipt Date: 20160315
  Transmission Date: 20160526
  Serious: No
  Sender: FDA-Public Use
  Company Number: US-WARNER CHILCOTT, LLC-1049101

PATIENT
  Age: 83 Year
  Sex: Female

DRUGS (4)
  1. DIOVAN [Concomitant]
     Active Substance: VALSARTAN
  2. ESTRACE [Suspect]
     Active Substance: ESTRADIOL
     Indication: VULVOVAGINAL PRURITUS
     Route: 067
     Dates: start: 20151202, end: 20151203
  3. DIAZEPAM. [Concomitant]
     Active Substance: DIAZEPAM
  4. BABY ASPIRIN [Concomitant]
     Active Substance: ASPIRIN

REACTIONS (5)
  - Condition aggravated [Not Recovered/Not Resolved]
  - Vulvovaginal burning sensation [Not Recovered/Not Resolved]
  - Vulvovaginal pruritus [Not Recovered/Not Resolved]
  - Feeling abnormal [Not Recovered/Not Resolved]
  - Skin abrasion [Not Recovered/Not Resolved]
